FAERS Safety Report 19691331 (Version 1)
Quarter: 2021Q3

REPORT INFORMATION
  Report Type: Spontaneous
  Country: US (occurrence: US)
  Receive Date: 20210812
  Receipt Date: 20210812
  Transmission Date: 20211014
  Serious: Yes (Other)
  Sender: FDA-Public Use
  Company Number: US-PFIZER INC-2021908157

PATIENT
  Age: 37 Year
  Sex: Male
  Weight: 73 kg

DRUGS (7)
  1. THIOPENTAL [Concomitant]
     Active Substance: THIOPENTAL
     Indication: ANAESTHESIA
     Dosage: 400 MG
     Route: 042
  2. HALOTHANE. [Suspect]
     Active Substance: HALOTHANE
     Indication: ANAESTHESIA
     Dosage: BY MASK
  3. SUCCINYLCHOLINE CHLORIDE. [Suspect]
     Active Substance: SUCCINYLCHOLINE CHLORIDE
     Indication: ENDOTRACHEAL INTUBATION
     Dosage: 100 MG
     Route: 042
  4. ATROPINE. [Concomitant]
     Active Substance: ATROPINE
     Indication: PROPHYLAXIS
     Dosage: 0.2 MG
     Route: 042
  5. SUCCINYLCHOLINE CHLORIDE. [Suspect]
     Active Substance: SUCCINYLCHOLINE CHLORIDE
     Dosage: 90 MG
     Route: 042
  6. FENTANYL. [Concomitant]
     Active Substance: FENTANYL
     Dosage: 75 UG
     Route: 042
  7. OXYGEN. [Concomitant]
     Active Substance: OXYGEN

REACTIONS (1)
  - Rhythm idioventricular [Recovered/Resolved]
